FAERS Safety Report 5223440-X (Version None)
Quarter: 2007Q1

REPORT INFORMATION
  Report Type: 
  Country: None (occurrence: None)
  Receive Date: 20070125
  Receipt Date: 20070111
  Transmission Date: 20070707
  Serious: Yes (Life-Threatening, Hospitalization)
  Sender: FDA-Public Use
  Company Number: 233681

PATIENT
  Age: 67 Year
  Sex: Male
  Weight: 106.2 kg

DRUGS (7)
  1. AVASTIN [Suspect]
     Indication: DRUG USE FOR UNKNOWN INDICATION
     Dosage: 500 MG, INTRAVENOUS
     Route: 042
     Dates: start: 20061127, end: 20061127
  2. OXALIPLATIN [Suspect]
     Indication: DRUG USE FOR UNKNOWN INDICATION
  3. CANDESARTAN (CANDESARTAN) [Concomitant]
  4. INADAPAMIDE (INDAPAMIDE) [Concomitant]
  5. FLUOROURACIL [Suspect]
     Indication: DRUG USE FOR UNKNOWN INDICATION
  6. ASPIRIN [Concomitant]
  7. SIMVASTATIN [Concomitant]

REACTIONS (6)
  - ANAPHYLACTIC REACTION [None]
  - BACK PAIN [None]
  - CHEST PAIN [None]
  - FLUSHING [None]
  - HYPERTENSION [None]
  - STRIDOR [None]
